FAERS Safety Report 4700463-8 (Version None)
Quarter: 2005Q2

REPORT INFORMATION
  Report Type: 
  Country: None (occurrence: None)
  Receive Date: 20050627
  Receipt Date: 20050616
  Transmission Date: 20051028
  Serious: Yes (Other)
  Sender: FDA-Public Use
  Company Number: ES-ROCHE-407845

PATIENT
  Sex: Female

DRUGS (1)
  1. XELODA [Suspect]
     Indication: COLON CANCER
     Route: 065

REACTIONS (1)
  - ILL-DEFINED DISORDER [None]
